FAERS Safety Report 13765488 (Version 1)
Quarter: 2017Q3

REPORT INFORMATION
  Report Type: Spontaneous
  Country: GB (occurrence: GB)
  Receive Date: 20170718
  Receipt Date: 20170718
  Transmission Date: 20171127
  Serious: Yes (Hospitalization)
  Sender: FDA-Public Use
  Company Number: GB-PFIZER INC-468639

PATIENT
  Age: 60 Year
  Sex: Female

DRUGS (5)
  1. UNIPHYLLIN [Concomitant]
     Active Substance: THEOPHYLLINE ANHYDROUS
     Dosage: 300 MG, FREQ: 2 DAY
     Route: 048
  2. SYMBICORT [Concomitant]
     Active Substance: BUDESONIDE\FORMOTEROL FUMARATE DIHYDRATE
     Dosage: 2 DF, FREQ: 2 DAY
  3. MECYSTEINE [Concomitant]
     Dosage: 200 MG, FREQ: 1 DAY
     Route: 048
  4. TERBUTALINE [Concomitant]
     Active Substance: TERBUTALINE
     Dosage: 2 DF, UNK
     Route: 055
  5. ERYTHROMYCIN. [Suspect]
     Active Substance: ERYTHROMYCIN
     Indication: EAR INFECTION
     Dosage: UNK
     Route: 048
     Dates: start: 20081020, end: 20081020

REACTIONS (3)
  - Hypertension [Recovering/Resolving]
  - Dyspnoea [Recovering/Resolving]
  - Hypersensitivity [Recovering/Resolving]

NARRATIVE: CASE EVENT DATE: 20081020
